FAERS Safety Report 18755835 (Version 1)
Quarter: 2021Q1

REPORT INFORMATION
  Report Type: Spontaneous
  Country: US (occurrence: US)
  Receive Date: 20210116
  Receipt Date: 20210116
  Transmission Date: 20210419
  Serious: No
  Sender: FDA-Public Use
  Company Number: None

PATIENT
  Age: 35 Year
  Sex: Female
  Weight: 76.5 kg

DRUGS (2)
  1. LIOTHYRONINE [Concomitant]
     Active Substance: LIOTHYRONINE
  2. ARMOUR THYROID [Suspect]
     Active Substance: THYROID, PORCINE
     Indication: HYPOTHYROIDISM
     Dosage: ?          QUANTITY:1 TABLET(S);?
     Route: 048
     Dates: start: 20201022, end: 20210115

REACTIONS (2)
  - Alopecia [None]
  - Product substitution issue [None]

NARRATIVE: CASE EVENT DATE: 20201102
